FAERS Safety Report 22140176 (Version 1)
Quarter: 2023Q1

REPORT INFORMATION
  Report Type: Spontaneous
  Country: CN (occurrence: CN)
  Receive Date: 20230327
  Receipt Date: 20230327
  Transmission Date: 20230418
  Serious: Yes (Other)
  Sender: FDA-Public Use
  Company Number: CN-009507513-2303CHN007249

PATIENT
  Age: 54 Year
  Sex: Male

DRUGS (3)
  1. CILASTATIN SODIUM\IMIPENEM [Suspect]
     Active Substance: CILASTATIN SODIUM\IMIPENEM
     Indication: Respiratory failure
     Dosage: 500 MG, QID/Q6H, IV DRIP (MICRO-PUMP)
     Route: 041
     Dates: start: 20230112, end: 20230120
  2. CILASTATIN SODIUM\IMIPENEM [Suspect]
     Active Substance: CILASTATIN SODIUM\IMIPENEM
     Dosage: 500 MG, Q12H
     Route: 041
     Dates: start: 20230120, end: 20230121
  3. SODIUM CHLORIDE [Suspect]
     Active Substance: SODIUM CHLORIDE
     Indication: Inflammation
     Dosage: 50 ML, QID/Q6H, IV DRIP (MICRO-PUMP)
     Route: 041
     Dates: start: 20230112

REACTIONS (5)
  - Haemodialysis [Unknown]
  - Disorganised speech [Recovering/Resolving]
  - Dysphoria [Recovering/Resolving]
  - Product use in unapproved indication [Unknown]
  - Product preparation issue [Unknown]

NARRATIVE: CASE EVENT DATE: 20230101
